FAERS Safety Report 23698126 (Version 1)
Quarter: 2024Q2

REPORT INFORMATION
  Report Type: Spontaneous
  Country: JP (occurrence: None)
  Receive Date: 20240402
  Receipt Date: 20240402
  Transmission Date: 20240715
  Serious: Yes (Other)
  Sender: FDA-Public Use
  Company Number: 2024A076395

PATIENT

DRUGS (2)
  1. ONDEXXYA [Suspect]
     Active Substance: ANDEXANET ALFA
     Dosage: DOSE UNKNOWN
     Route: 042
     Dates: start: 20240309, end: 20240309
  2. XARELTO [Concomitant]
     Active Substance: RIVAROXABAN
     Dosage: DOSE UNKNOWN
     Route: 048

REACTIONS (1)
  - Cerebral venous sinus thrombosis [Unknown]

NARRATIVE: CASE EVENT DATE: 20240309
